FAERS Safety Report 8212145-9 (Version None)
Quarter: 2012Q1

REPORT INFORMATION
  Report Type: 
  Country: None (occurrence: None)
  Receive Date: 20120315
  Receipt Date: 20120313
  Transmission Date: 20120608
  Serious: Yes (Death)
  Sender: FDA-Public Use
  Company Number: PHHY2012GT022065

PATIENT
  Age: 90 Year
  Sex: Male

DRUGS (5)
  1. LANZOPRAL [Concomitant]
     Dosage: 30 MG PER DAY
     Route: 048
  2. RAMIPRIL [Concomitant]
     Dosage: 5 MG PER DAY
     Route: 048
  3. CORDARONE [Concomitant]
     Dosage: 100 MG PER DAY
     Route: 048
  4. OXYGEN [Concomitant]
  5. EXELON [Suspect]
     Indication: DEMENTIA
     Dosage: 4.6 MG, (PATCH 5, 1 PATCH PER DAY)
     Route: 062
     Dates: start: 20100801

REACTIONS (1)
  - HYPERTENSIVE CARDIOMYOPATHY [None]
